FAERS Safety Report 12597839 (Version 2)
Quarter: 2016Q3

REPORT INFORMATION
  Report Type: Spontaneous
  Country: LB (occurrence: LB)
  Receive Date: 20160727
  Receipt Date: 20160808
  Transmission Date: 20161109
  Serious: Yes (Death, Life-Threatening)
  Sender: FDA-Public Use
  Company Number: LB-NOVOPROD-502077

PATIENT
  Age: 56 Year

DRUGS (1)
  1. NOVOSEVEN [Suspect]
     Active Substance: COAGULATION FACTOR VIIA RECOMBINANT HUMAN
     Indication: HAEMOTHORAX
     Dosage: 1 MG
     Route: 065

REACTIONS (3)
  - Death [Fatal]
  - Haemorrhage [Unknown]
  - Off label use [Unknown]
